FAERS Safety Report 24715436 (Version 1)
Quarter: 2024Q4

REPORT INFORMATION
  Report Type: Report from Study
  Country: US (occurrence: US)
  Receive Date: 20241210
  Receipt Date: 20241210
  Transmission Date: 20250114
  Serious: Yes (Death)
  Sender: ABBVIE
  Company Number: US-ABBVIE-6038256

PATIENT
  Age: 77 Year
  Sex: Female

DRUGS (1)
  1. CREON [Suspect]
     Active Substance: PANCRELIPASE AMYLASE\PANCRELIPASE LIPASE\PANCRELIPASE PROTEASE
     Indication: Product used for unknown indication
     Dosage: CREON 24000 - TAKE 4 CAPSULES BY MOUTH WITH MEALS AND TAKE TWO CAPSULES BY MOUTH WITH SNACKS
     Route: 048
     Dates: start: 202301, end: 20241203

REACTIONS (2)
  - Cerebrovascular accident [Fatal]
  - Paralysis [Fatal]

NARRATIVE: CASE EVENT DATE: 20240101
